FAERS Safety Report 9936845 (Version 1)
Quarter: 2014Q1

REPORT INFORMATION
  Report Type: Spontaneous
  Country: US (occurrence: None)
  Receive Date: 20140114
  Receipt Date: 20140114
  Transmission Date: 20141002
  Serious: Yes (Other)
  Sender: FDA-Public Use
  Company Number: ALCN2013US005836

PATIENT
  Sex: Male

DRUGS (1)
  1. SIMBRINZA [Suspect]
     Indication: GLAUCOMA
     Dosage: UNK, BOTH EYES-OPH
     Route: 047
     Dates: start: 20131114, end: 20131117

REACTIONS (3)
  - Hypersensitivity [None]
  - Ocular hyperaemia [None]
  - Eyelid oedema [None]
